FAERS Safety Report 10038395 (Version 2)
Quarter: 2014Q2

REPORT INFORMATION
  Report Type: Spontaneous
  Country: US (occurrence: US)
  Receive Date: 20140326
  Receipt Date: 20140506
  Transmission Date: 20141212
  Serious: No
  Sender: FDA-Public Use
  Company Number: US-PFIZER INC-2014082602

PATIENT
  Age: 61 Year
  Sex: Male

DRUGS (8)
  1. CADUET [Suspect]
     Indication: HYPERTENSION
     Dosage: 10/10, 1X/DAY
     Route: 048
     Dates: start: 201201, end: 201208
  2. BYSTOLIC [Concomitant]
     Indication: HYPERTENSION
     Dosage: 5 MG, 1X/DAY
  3. SPIRONOLACTONE [Concomitant]
     Indication: HYPERTENSION
     Dosage: 25 MG, 1X/DAY
  4. LISINOPRIL [Concomitant]
     Indication: HYPERTENSION
     Dosage: 20 MG, 1X/DAY
  5. JANUMET [Concomitant]
     Indication: DIABETES MELLITUS
     Dosage: 500/50, 2X/DAY
     Route: 048
  6. GLYBURIDE [Concomitant]
     Indication: DIABETES MELLITUS
     Dosage: 5 MG, 1X/DAY
     Route: 048
  7. VIAGRA [Concomitant]
     Indication: ERECTILE DYSFUNCTION
     Dosage: 50 MG, AS NEEDED
  8. ASA [Concomitant]
     Dosage: 325 MG, 1X/DAY

REACTIONS (2)
  - Drug hypersensitivity [Unknown]
  - Peripheral swelling [Recovered/Resolved]
